FAERS Safety Report 25882430 (Version 1)
Quarter: 2025Q4

REPORT INFORMATION
  Report Type: Spontaneous
  Country: US (occurrence: US)
  Receive Date: 20251006
  Receipt Date: 20251006
  Transmission Date: 20260118
  Serious: No
  Sender: ELI LILLY AND COMPANY
  Company Number: US-ELI_LILLY_AND_COMPANY-US202509026863

PATIENT
  Age: 83 Year
  Sex: Female

DRUGS (2)
  1. KISUNLA [Suspect]
     Active Substance: DONANEMAB-AZBT
     Indication: Dementia Alzheimer^s type
     Dosage: A HALF DOSE, (TWO WEEKS APART)
     Route: 065
  2. KISUNLA [Suspect]
     Active Substance: DONANEMAB-AZBT
     Dosage: A FULL DOSE, OTHER (TWO WEEKS APART)
     Route: 065

REACTIONS (3)
  - Dementia Alzheimer^s type [Unknown]
  - Dizziness [Unknown]
  - Off label use [Unknown]
